FAERS Safety Report 9589607 (Version 1)
Quarter: 2013Q4

REPORT INFORMATION
  Report Type: Spontaneous
  Country: US (occurrence: US)
  Receive Date: 20131003
  Receipt Date: 20131003
  Transmission Date: 20140711
  Serious: No
  Sender: FDA-Public Use
  Company Number: US-AMGEN-USASP2012071268

PATIENT
  Sex: Female
  Weight: 67.12 kg

DRUGS (5)
  1. ENBREL [Suspect]
     Indication: PSORIATIC ARTHROPATHY
     Dosage: 50 MG, QWK
     Route: 058
  2. TOPAMAX [Concomitant]
     Dosage: 200 MG, UNK
  3. WELLBUTRIN [Concomitant]
     Dosage: 100 MG, UNK
  4. FLEXERIL                           /00428402/ [Concomitant]
     Dosage: 10 MG, UNK
  5. ALLERGY DN [Concomitant]
     Dosage: UNK

REACTIONS (1)
  - White blood cell count decreased [Unknown]
